FAERS Safety Report 6680832-X (Version None)
Quarter: 2010Q2

REPORT INFORMATION
  Report Type: 
  Country: None (occurrence: None)
  Receive Date: 20100414
  Receipt Date: 20100401
  Transmission Date: 20101027
  Serious: Yes (Death, Hospitalization)
  Sender: FDA-Public Use
  Company Number: BR-PFIZER INC-2010046231

PATIENT
  Age: 57 Year
  Sex: Male

DRUGS (4)
  1. IRINOTECAN HCL [Suspect]
     Indication: COLORECTAL CANCER METASTATIC
     Dosage: 180 MG/M2, EVERY 2 WEEKS
     Route: 042
     Dates: start: 20050919
  2. CETUXIMAB [Suspect]
     Indication: COLORECTAL CANCER METASTATIC
     Dosage: 250 MG/M2, WEEKLY
     Route: 042
     Dates: start: 20050919
  3. FOLINIC ACID [Suspect]
     Indication: COLORECTAL CANCER METASTATIC
     Dosage: 400 MG/M2, EVERY 2 WEEKS
     Route: 042
     Dates: start: 20050919
  4. FLUOROURACIL [Suspect]
     Indication: COLORECTAL CANCER METASTATIC
     Dosage: 1 IN 2 WEEKS
     Route: 042
     Dates: start: 20050919

REACTIONS (4)
  - FEBRILE NEUTROPENIA [None]
  - METABOLIC ACIDOSIS [None]
  - SEPTIC SHOCK [None]
  - UPPER GASTROINTESTINAL HAEMORRHAGE [None]
